FAERS Safety Report 12668146 (Version 1)
Quarter: 2016Q3

REPORT INFORMATION
  Report Type: Report from Study
  Country: AT (occurrence: AT)
  Receive Date: 20160819
  Receipt Date: 20160819
  Transmission Date: 20161109
  Serious: Yes (Hospitalization, Other)
  Sender: FDA-Public Use
  Company Number: AT-BAYER-2015-027672

PATIENT
  Age: 72 Year
  Sex: Male
  Weight: 82 kg

DRUGS (18)
  1. STIVARGA [Suspect]
     Active Substance: REGORAFENIB
     Indication: COLORECTAL CANCER METASTATIC
     Dosage: 120 MG, QD
     Route: 048
     Dates: start: 20141208, end: 20150204
  2. MARCOUMAR [Concomitant]
     Active Substance: PHENPROCOUMON
     Dosage: DEPENDING ON INR
     Dates: start: 201112
  3. BLOPRESS [Concomitant]
     Active Substance: CANDESARTAN CILEXETIL
     Dosage: 4 MG, QD
     Dates: start: 2013
  4. NEURONTIN [Concomitant]
     Active Substance: GABAPENTIN
     Dosage: 600 MG, QD
     Dates: start: 2012
  5. STIVARGA [Suspect]
     Active Substance: REGORAFENIB
     Indication: COLORECTAL CANCER METASTATIC
     Dosage: UNK
     Dates: start: 201509, end: 201509
  6. TAVANIC [Concomitant]
     Active Substance: LEVOFLOXACIN
     Dosage: 1G
     Dates: start: 20131217, end: 20141223
  7. LASILACTON [Concomitant]
     Active Substance: FUROSEMIDE\SPIRONOLACTONE
     Dosage: 20/100
     Dates: start: 201308
  8. LEUCOVORIN. [Concomitant]
     Active Substance: LEUCOVORIN
     Dosage: UNK
     Dates: start: 20150205, end: 20150616
  9. DIGIMERCK [Concomitant]
     Active Substance: DIGITOXIN
     Dosage: 0.07MG
     Dates: start: 2009
  10. NOMEXOR [Concomitant]
     Active Substance: NEBIVOLOL HYDROCHLORIDE
     Dosage: 5 MG, QD
     Dates: start: 2011
  11. FORMOTEROL [Concomitant]
     Active Substance: FORMOTEROL
  12. 5-FU [Concomitant]
     Active Substance: FLUOROURACIL
     Dosage: UNK
     Dates: start: 20150205, end: 20150617
  13. THROMBO ASS [Concomitant]
     Active Substance: ASPIRIN
     Dosage: 100 MG, QD
     Dates: start: 20150212
  14. SIMVASTATIN BAYER 20 MG-FILMTABLETTEN [Concomitant]
     Dosage: 20 MG, QD
     Dates: start: 20150212
  15. CAMPTO [Concomitant]
     Active Substance: IRINOTECAN
     Dosage: UNK
     Dates: start: 20150205, end: 20150616
  16. NOVALGIN [Concomitant]
     Active Substance: METAMIZOLE SODIUM
     Dosage: 2 G, QD
     Route: 048
     Dates: start: 201408
  17. LYRICA [Concomitant]
     Active Substance: PREGABALIN
     Dosage: DAILY DOSE 150MG
     Dates: start: 201406
  18. SPIRIVA [Concomitant]
     Active Substance: TIOTROPIUM BROMIDE MONOHYDRATE
     Dosage: 36 ?G, QD
     Dates: start: 201308

REACTIONS (11)
  - Colorectal cancer metastatic [Not Recovered/Not Resolved]
  - Chest pain [Not Recovered/Not Resolved]
  - Dysphonia [Recovering/Resolving]
  - Ischaemic stroke [Recovered/Resolved with Sequelae]
  - Fatigue [Not Recovered/Not Resolved]
  - Infection [Recovered/Resolved]
  - Decreased appetite [Recovering/Resolving]
  - Hyperbilirubinaemia [Recovered/Resolved]
  - Cough [Recovered/Resolved]
  - Mucosal inflammation [Not Recovered/Not Resolved]
  - Dyspnoea [Not Recovered/Not Resolved]

NARRATIVE: CASE EVENT DATE: 20141210
